FAERS Safety Report 9259295 (Version 2)
Quarter: 2013Q2

REPORT INFORMATION
  Report Type: Spontaneous
  Country: US (occurrence: US)
  Receive Date: 20130427
  Receipt Date: 20130502
  Transmission Date: 20140414
  Serious: Yes (Hospitalization)
  Sender: FDA-Public Use
  Company Number: US-UCBSA-084176

PATIENT
  Age: 46 Year
  Sex: Male

DRUGS (7)
  1. CIMZIA [Suspect]
     Indication: CROHN^S DISEASE
     Dates: start: 20121001, end: 2013
  2. CALCIUM SUPPLEMENT [Concomitant]
  3. NEXIUM [Concomitant]
  4. POTASSIUM SUPPLEMENT [Concomitant]
  5. MAGNESIUM GLUCONATE [Concomitant]
  6. CHOLESTYRAMINE [Concomitant]
  7. XIFAXIN [Concomitant]

REACTIONS (1)
  - Anaemia vitamin B12 deficiency [Recovering/Resolving]
